FAERS Safety Report 7118379-9 (Version None)
Quarter: 2010Q4

REPORT INFORMATION
  Report Type: 
  Country: None (occurrence: None)
  Receive Date: 20101020
  Receipt Date: 20100922
  Transmission Date: 20110411
  Serious: Yes (Other)
  Sender: FDA-Public Use
  Company Number: AUR-APL-2010-02439

PATIENT
  Age: 17 Year
  Sex: Female
  Weight: 80 kg

DRUGS (3)
  1. CEFTRIAXONE [Suspect]
  2. CLINDAMYCIN PHOSPHATE [Suspect]
  3. HYDROCORTISONE [Suspect]

REACTIONS (1)
  - HYPERSENSITIVITY [None]
